FAERS Safety Report 19927110 (Version 1)
Quarter: 2021Q4

REPORT INFORMATION
  Report Type: Spontaneous
  Country: CN (occurrence: CN)
  Receive Date: 20211006
  Receipt Date: 20211006
  Transmission Date: 20220303
  Serious: Yes (Other)
  Sender: FDA-Public Use
  Company Number: CN-BAXTER-2021BAX023843

PATIENT
  Age: 3 Year
  Sex: Female
  Weight: 16 kg

DRUGS (8)
  1. CYCLOPHOSPHAMIDE [Suspect]
     Active Substance: CYCLOPHOSPHAMIDE
     Indication: Acute lymphocytic leukaemia
     Dosage: DILUTED WITH 250ML OF (4:1) GLUCOSE AND SODIUM CHLORIDE INJECTION
     Route: 041
     Dates: start: 20190705, end: 20190705
  2. DEXTROSE\SODIUM CHLORIDE [Suspect]
     Active Substance: DEXTROSE\SODIUM CHLORIDE
     Indication: Medication dilution
     Dosage: COMBINED WITH CYCLOPHOSPHAMIDE FOR INJECTION
     Route: 041
     Dates: start: 20190705, end: 20190705
  3. SODIUM CHLORIDE [Suspect]
     Active Substance: SODIUM CHLORIDE
     Indication: Medication dilution
     Dosage: COMBINED WITH CYTARABINE FOR INJECTION
     Route: 058
     Dates: start: 20190705, end: 20190708
  4. SODIUM CHLORIDE [Suspect]
     Active Substance: SODIUM CHLORIDE
     Dosage: COMBINED WITH CYTARABINE FOR INJECTION
     Route: 058
     Dates: start: 20190712, end: 20190715
  5. CYTARABINE [Suspect]
     Active Substance: CYTARABINE
     Indication: Acute lymphocytic leukaemia
     Dosage: DILUTED WITH 1ML OF 0.9% SODIUM CHLORIDE INJECTION
     Route: 058
     Dates: start: 20190705, end: 20190708
  6. CYTARABINE [Suspect]
     Active Substance: CYTARABINE
     Dosage: DILUTED WITH 1ML OF 0.9% SODIUM CHLORIDE INJECTION
     Route: 058
     Dates: start: 20190712, end: 20190715
  7. MERCAPTOPURINE [Suspect]
     Active Substance: MERCAPTOPURINE
     Indication: Acute lymphocytic leukaemia
     Dosage: TABLET
     Route: 048
     Dates: start: 20190705, end: 20190718
  8. ONDANSETRON HYDROCHLORIDE [Concomitant]
     Active Substance: ONDANSETRON HYDROCHLORIDE
     Indication: Vomiting
     Route: 042
     Dates: start: 20190712, end: 20190715

REACTIONS (1)
  - Myelosuppression [Recovering/Resolving]

NARRATIVE: CASE EVENT DATE: 20190721
